FAERS Safety Report 6714563-4 (Version None)
Quarter: 2010Q2

REPORT INFORMATION
  Report Type: 
  Country: None (occurrence: None)
  Receive Date: 20100506
  Receipt Date: 20100422
  Transmission Date: 20101027
  Serious: Yes (Life-Threatening, Hospitalization)
  Sender: FDA-Public Use
  Company Number: DE-MYLANLABS-2010S1007051

PATIENT
  Age: 22 Year
  Sex: Female
  Weight: 57 kg

DRUGS (6)
  1. IBUPROFEN [Suspect]
     Indication: PAIN
     Route: 048
     Dates: start: 20090121, end: 20090130
  2. PANTOZOL [Suspect]
     Indication: PROPHYLAXIS AGAINST GASTROINTESTINAL ULCER
     Route: 048
     Dates: start: 20090121, end: 20090210
  3. OXYGESIC [Suspect]
     Indication: PAIN
     Route: 048
     Dates: start: 20090130, end: 20090210
  4. VOLTAREN [Suspect]
     Indication: PAIN
     Route: 054
     Dates: start: 20090130, end: 20090210
  5. CLEXANE [Suspect]
     Indication: THROMBOSIS PROPHYLAXIS
     Route: 058
     Dates: start: 20090121
  6. BERLOSIN [Concomitant]
     Indication: PAIN
     Route: 048
     Dates: start: 20090121, end: 20090130

REACTIONS (1)
  - HEPATIC LESION [None]
